FAERS Safety Report 8372113-3 (Version None)
Quarter: 2012Q2

REPORT INFORMATION
  Report Type: 
  Country: None (occurrence: None)
  Receive Date: 20120521
  Receipt Date: 20120515
  Transmission Date: 20120825
  Serious: Yes (Other)
  Sender: FDA-Public Use
  Company Number: PHHY2012HR041285

PATIENT
  Age: 47 Year
  Sex: Male

DRUGS (1)
  1. KETOPROFEN [Suspect]
     Indication: SPINAL DISORDER
     Dosage: 1 DF, PER DAY

REACTIONS (6)
  - SPINAL PAIN [None]
  - CYST [None]
  - OSTEOARTHRITIS [None]
  - ARTHRALGIA [None]
  - EXPIRED DRUG ADMINISTERED [None]
  - LOSS OF CONTROL OF LEGS [None]
